FAERS Safety Report 25424226 (Version 3)
Quarter: 2025Q3

REPORT INFORMATION
  Report Type: Report from Study
  Country: CO (occurrence: CO)
  Receive Date: 20250611
  Receipt Date: 20250715
  Transmission Date: 20251020
  Serious: Yes (Other)
  Sender: NOVARTIS
  Company Number: CO-002147023-NVSC2025CO086317

PATIENT
  Age: 67 Year
  Sex: Female
  Weight: 59 kg

DRUGS (11)
  1. KISQALI [Suspect]
     Active Substance: RIBOCICLIB SUCCINATE
     Indication: Hormone receptor positive HER2 negative breast cancer
     Dosage: 600 MG, QD, DAILY FOR 21 DAYS
     Route: 048
     Dates: start: 20250426
  2. KISQALI [Suspect]
     Active Substance: RIBOCICLIB SUCCINATE
     Dosage: 2 X 200MG, QD, DAILY FOR 21 DAYS
     Route: 048
     Dates: end: 20250516
  3. FULVESTRANT [Suspect]
     Active Substance: FULVESTRANT
     Indication: Product used for unknown indication
     Route: 065
  4. FULVESTRANT [Suspect]
     Active Substance: FULVESTRANT
     Route: 065
  5. FULVESTRANT [Suspect]
     Active Substance: FULVESTRANT
     Route: 065
  6. FULVESTRANT [Suspect]
     Active Substance: FULVESTRANT
     Route: 065
     Dates: start: 20250707
  7. IBANDRONIC ACID [Concomitant]
     Active Substance: IBANDRONIC ACID
     Indication: Breast cancer
     Route: 042
  8. IBANDRONIC ACID [Concomitant]
     Active Substance: IBANDRONIC ACID
     Dosage: 6 MG, EVERY 3 MONTHS
     Route: 042
  9. IBANDRONIC ACID [Concomitant]
     Active Substance: IBANDRONIC ACID
     Dosage: 1 X 6 MG, Q24H
     Route: 058
  10. ERYTHROPOIETIN [Concomitant]
     Active Substance: ERYTHROPOIETIN
     Indication: Breast cancer
     Dosage: 2000 UNITS, 3 TIMES A WEEK/72 HOURS
     Route: 058
  11. ERYTHROPOIETIN [Concomitant]
     Active Substance: ERYTHROPOIETIN
     Indication: Anaemia
     Route: 065
     Dates: start: 202504

REACTIONS (9)
  - Discomfort [Recovered/Resolved]
  - Headache [Recovered/Resolved]
  - Decreased appetite [Recovered/Resolved]
  - Pain [Unknown]
  - Bone pain [Unknown]
  - Product supply issue [Unknown]
  - Weight decreased [Recovered/Resolved]
  - Haemoglobin abnormal [Recovered/Resolved]
  - Headache [Unknown]

NARRATIVE: CASE EVENT DATE: 20250401
